FAERS Safety Report 8292359-2 (Version None)
Quarter: 2012Q2

REPORT INFORMATION
  Report Type: 
  Country: None (occurrence: None)
  Receive Date: 20120417
  Receipt Date: 20111114
  Transmission Date: 20120825
  Serious: No
  Sender: FDA-Public Use
  Company Number: US-BAUSCH-2011BL007990

PATIENT
  Age: 92 Year
  Sex: Female

DRUGS (1)
  1. FLUNISOLIDE [Suspect]
     Indication: MULTIPLE ALLERGIES
     Route: 045
     Dates: start: 20111001, end: 20111001

REACTIONS (1)
  - EPISTAXIS [None]
